FAERS Safety Report 21043904 (Version 3)
Quarter: 2024Q3

REPORT INFORMATION
  Report Type: Spontaneous
  Country: US (occurrence: US)
  Receive Date: 20220705
  Receipt Date: 20240702
  Transmission Date: 20241016
  Serious: No
  Sender: SAREPTA THERAPEUTICS
  Company Number: US-SAREPTA THERAPEUTICS INC.-SRP2022-002252

PATIENT
  Age: 10 Year
  Sex: Male

DRUGS (2)
  1. EXONDYS 51 [Suspect]
     Active Substance: ETEPLIRSEN
     Indication: Duchenne muscular dystrophy
     Dosage: 1000 MILLIGRAM WEEKLY
     Route: 042
     Dates: start: 20170516
  2. EMFLAZA [Concomitant]
     Active Substance: DEFLAZACORT
     Indication: Product used for unknown indication
     Dosage: 18 MILLIGRAM, QD

REACTIONS (1)
  - Poor venous access [Unknown]

NARRATIVE: CASE EVENT DATE: 20220518
